FAERS Safety Report 6342923-2 (Version None)
Quarter: 2009Q3

REPORT INFORMATION
  Report Type: 
  Country: None (occurrence: None)
  Receive Date: 20090908
  Receipt Date: 20090901
  Transmission Date: 20100115
  Serious: Yes (Death)
  Sender: FDA-Public Use
  Company Number: US-ROCHE-653973

PATIENT
  Sex: Male
  Weight: 124.7 kg

DRUGS (1)
  1. CAPECITABINE [Suspect]
     Indication: COLORECTAL CANCER
     Route: 048
     Dates: start: 20080402, end: 20090827

REACTIONS (1)
  - MYOCARDIAL INFARCTION [None]
